FAERS Safety Report 22174222 (Version 1)
Quarter: 2023Q2

REPORT INFORMATION
  Report Type: Spontaneous
  Country: FR (occurrence: FR)
  Receive Date: 20230405
  Receipt Date: 20230405
  Transmission Date: 20230722
  Serious: Yes (Hospitalization)
  Sender: FDA-Public Use
  Company Number: None

PATIENT
  Age: 78 Year
  Sex: Female
  Weight: 85 kg

DRUGS (6)
  1. CLONAZEPAM [Suspect]
     Active Substance: CLONAZEPAM
     Indication: Intentional overdose
     Dosage: 2 BOTTLES
     Route: 048
     Dates: start: 20230220, end: 20230220
  2. IXPRIM [Suspect]
     Active Substance: ACETAMINOPHEN\TRAMADOL HYDROCHLORIDE
     Indication: Intentional overdose
     Route: 048
     Dates: start: 20230220, end: 20230220
  3. LORAZEPAM [Suspect]
     Active Substance: LORAZEPAM
     Indication: Intentional overdose
     Dosage: SCORED TABLET, 2.5 MG X 30CP
     Route: 048
     Dates: start: 20230220, end: 20230220
  4. KARDEGIC [Concomitant]
     Active Substance: ASPIRIN DL-LYSINE
     Dosage: DAILY DOSE: 75 MILLIGRAM
  5. ATORVASTATIN [Concomitant]
     Active Substance: ATORVASTATIN
     Dosage: DAILY DOSE: 10 MILLIGRAM
  6. BISOPROLOL [Concomitant]
     Active Substance: BISOPROLOL

REACTIONS (4)
  - Coma [Recovered/Resolved]
  - Vomiting [Recovered/Resolved]
  - Miosis [Recovered/Resolved]
  - Toxicity to various agents [Recovered/Resolved]

NARRATIVE: CASE EVENT DATE: 20230220
